FAERS Safety Report 23611156 (Version 1)
Quarter: 2024Q1

REPORT INFORMATION
  Report Type: Spontaneous
  Country: US (occurrence: US)
  Receive Date: 20240308
  Receipt Date: 20240308
  Transmission Date: 20240409
  Serious: No
  Sender: FDA-Public Use
  Company Number: US-FMCRTG-FMC-2402-000195

PATIENT
  Sex: Female

DRUGS (1)
  1. DELFLEX [Suspect]
     Active Substance: CALCIUM CHLORIDE\DEXTROSE\MAGNESIUM CHLORIDE\SODIUM CHLORIDE\SODIUM LACTATE
     Indication: End stage renal disease
     Dosage: CCPD / TX BASED; FILLS = 4; FILL VOLUME = 2200 ML; LAST FILL VOLUME = 0ML; TOTAL VOLUME = 8800 ML; T
     Route: 033

REACTIONS (1)
  - Bloody peritoneal effluent [Unknown]
